FAERS Safety Report 20688172 (Version 2)
Quarter: 2024Q4

REPORT INFORMATION
  Report Type: Report from Study
  Country: CA (occurrence: CA)
  Receive Date: 20220408
  Receipt Date: 20241205
  Transmission Date: 20250114
  Serious: Yes (Other)
  Sender: TAKEDA
  Company Number: CA-TAKEDA-2021TUS026692

PATIENT
  Age: 50 Year
  Sex: Female

DRUGS (3)
  1. VEDOLIZUMAB [Suspect]
     Active Substance: VEDOLIZUMAB
     Indication: Crohn^s disease
     Dosage: 300 MILLIGRAM
  2. IMURAN [Concomitant]
     Active Substance: AZATHIOPRINE
     Dosage: UNK
  3. HYDROXYZINE [Concomitant]
     Active Substance: HYDROXYZINE HYDROCHLORIDE
     Dosage: UNK

REACTIONS (28)
  - Cataract [Unknown]
  - Diarrhoea [Unknown]
  - Poor quality sleep [Unknown]
  - Synovial disorder [Unknown]
  - Glycosylated haemoglobin abnormal [Unknown]
  - Mobility decreased [Unknown]
  - Dry eye [Unknown]
  - Gastrointestinal inflammation [Unknown]
  - Liver function test abnormal [Unknown]
  - Dry mouth [Unknown]
  - Gout [Unknown]
  - Gastrointestinal pain [Recovered/Resolved]
  - Dysgeusia [Unknown]
  - Gastritis [Unknown]
  - Frequent bowel movements [Unknown]
  - Lipase increased [Unknown]
  - Pollakiuria [Unknown]
  - White blood cell count increased [Unknown]
  - Cold sweat [Unknown]
  - Blood pressure abnormal [Unknown]
  - Gastrointestinal disorder [Unknown]
  - Body temperature abnormal [Unknown]
  - Malaise [Unknown]
  - Abdominal hernia [Unknown]
  - Dizziness [Unknown]
  - Dyspnoea [Unknown]
  - Arthralgia [Unknown]
  - Fatigue [Unknown]

NARRATIVE: CASE EVENT DATE: 20220226
